FAERS Safety Report 6784101-9 (Version None)
Quarter: 2010Q2

REPORT INFORMATION
  Report Type: 
  Country: None (occurrence: None)
  Receive Date: 20100618
  Receipt Date: 20100607
  Transmission Date: 20101027
  Serious: Yes (Other)
  Sender: FDA-Public Use
  Company Number: OPER20100087

PATIENT
  Age: 45 Year
  Sex: Male
  Weight: 70.7611 kg

DRUGS (6)
  1. OPANA ER [Suspect]
     Indication: BACK PAIN
     Dosage: 40 MG Q12H, INTRAVENOUS; 40 MG Q12H
     Route: 042
     Dates: end: 20091002
  2. VICODIN ES [Suspect]
     Indication: BACK PAIN
     Dosage: ^BID^
     Dates: start: 20081001, end: 20091002
  3. DIAZEPAM (DIAZEPAM) (UNKNOWN) (DIAZEPAM) [Concomitant]
  4. TRAZODONE (TRAZODONE) (TRAZODONE) [Concomitant]
  5. TRICOR (FENOFIBRATE) (UNKNOWN) ( FENOFIBRATE) [Concomitant]
  6. IBUPROFEN (IBUPROFEN) (UNKNOWN)(IBUPROFEN) [Concomitant]

REACTIONS (2)
  - THERAPY NAIVE [None]
  - WRONG TECHNIQUE IN DRUG USAGE PROCESS [None]
